APPROVED DRUG PRODUCT: FLUPHENAZINE DECANOATE
Active Ingredient: FLUPHENAZINE DECANOATE
Strength: 25MG/ML
Dosage Form/Route: INJECTABLE;INJECTION
Application: A074966 | Product #001
Applicant: HOSPIRA INC
Approved: Apr 16, 1998 | RLD: No | RS: No | Type: DISCN